FAERS Safety Report 19113541 (Version 1)
Quarter: 2021Q2

REPORT INFORMATION
  Report Type: Spontaneous
  Country: US (occurrence: US)
  Receive Date: 20210408
  Receipt Date: 20210408
  Transmission Date: 20210717
  Serious: Yes (Other)
  Sender: FDA-Public Use
  Company Number: US-ABBVIE-21K-163-3845296-00

PATIENT
  Age: 58 Year
  Sex: Female

DRUGS (6)
  1. VIMPAT [Concomitant]
     Active Substance: LACOSAMIDE
     Indication: SEIZURE
  2. CARBOPLATIN;PEMETREXED DISODIUM [Concomitant]
     Indication: PRODUCT USED FOR UNKNOWN INDICATION
     Dates: start: 20141230
  3. DEXAMETHASONE. [Concomitant]
     Active Substance: DEXAMETHASONE
     Indication: PRODUCT USED FOR UNKNOWN INDICATION
     Dosage: 4MG AM AND 4MG EARLY PM
  4. DEPAKOTE [Suspect]
     Active Substance: DIVALPROEX SODIUM
     Indication: SEIZURE
     Route: 048
  5. CAPMATINIB [Suspect]
     Active Substance: CAPMATINIB
     Indication: PRODUCT USED FOR UNKNOWN INDICATION
     Route: 065
  6. CRIZOTINIB [Suspect]
     Active Substance: CRIZOTINIB
     Indication: GENE MUTATION
     Route: 065
     Dates: start: 2016

REACTIONS (7)
  - Postoperative wound infection [Unknown]
  - Lung cancer metastatic [Not Recovered/Not Resolved]
  - Central nervous system lesion [Unknown]
  - Peripheral swelling [Unknown]
  - Cranioplasty [Unknown]
  - Malabsorption [Unknown]
  - Nodule [Unknown]

NARRATIVE: CASE EVENT DATE: 2014
